FAERS Safety Report 5302077-8 (Version None)
Quarter: 2007Q2

REPORT INFORMATION
  Report Type: 
  Country: None (occurrence: None)
  Receive Date: 20070419
  Receipt Date: 20070410
  Transmission Date: 20071010
  Serious: Yes (Hospitalization)
  Sender: FDA-Public Use
  Company Number: US-GLAXOSMITHKLINE-A0642900B

PATIENT
  Age: 74 Year
  Sex: Female
  Weight: 50.2 kg

DRUGS (5)
  1. LAPATINIB [Suspect]
     Dosage: 1000MG PER DAY
     Route: 048
     Dates: start: 20061107
  2. CAPECITABINE [Suspect]
     Dosage: 750MG TWICE PER DAY
     Route: 048
     Dates: start: 20061107
  3. PROTONIX [Concomitant]
  4. NORVASC [Concomitant]
  5. DETROL LA [Concomitant]

REACTIONS (5)
  - DEHYDRATION [None]
  - DIARRHOEA [None]
  - GASTROENTERITIS [None]
  - LETHARGY [None]
  - PYREXIA [None]
